FAERS Safety Report 4836984-7 (Version None)
Quarter: 2005Q4

REPORT INFORMATION
  Report Type: 
  Country: None (occurrence: None)
  Receive Date: 20051121
  Receipt Date: 20051110
  Transmission Date: 20060501
  Serious: Yes (Disabling)
  Sender: FDA-Public Use
  Company Number: HQWYE495010NOV05

PATIENT
  Age: 44 Year
  Sex: Male

DRUGS (8)
  1. PANTOZOL (PANTOPRAZOLE) [Suspect]
     Indication: OESOPHAGEAL ULCER
     Dosage: 40 MG 1X PER 1 DAY
     Dates: start: 20050401
  2. RISPERDAL [Suspect]
     Dosage: 3 MG 1X PER 1 DAY; 6 MG 1X PER 1 DAY; 8 MG 1X PER 1 DAY; 1 MG 1X PER 1 DAY
     Dates: start: 20050402, end: 20050101
  3. RISPERDAL [Suspect]
     Dosage: 3 MG 1X PER 1 DAY; 6 MG 1X PER 1 DAY; 8 MG 1X PER 1 DAY; 1 MG 1X PER 1 DAY
     Dates: start: 20050324, end: 20050325
  4. RISPERDAL [Suspect]
     Dosage: 3 MG 1X PER 1 DAY; 6 MG 1X PER 1 DAY; 8 MG 1X PER 1 DAY; 1 MG 1X PER 1 DAY
     Dates: start: 20050326, end: 20050328
  5. RISPERDAL [Suspect]
     Dosage: 3 MG 1X PER 1 DAY; 6 MG 1X PER 1 DAY; 8 MG 1X PER 1 DAY; 1 MG 1X PER 1 DAY
     Dates: start: 20050329, end: 20050401
  6. RISPERDAL CONSTA [Suspect]
     Dosage: 25 MG - FREQUENCY UNSPECIFIED; 37.5 MG (FREQUENCY UNSPECIFIED)
     Route: 030
     Dates: start: 20050317, end: 20050330
  7. RISPERDAL CONSTA [Suspect]
     Dosage: 25 MG - FREQUENCY UNSPECIFIED; 37.5 MG (FREQUENCY UNSPECIFIED)
     Route: 030
     Dates: start: 20050331
  8. TEMAZEPAM [Concomitant]

REACTIONS (15)
  - AKATHISIA [None]
  - AKINESIA [None]
  - BARRETT'S OESOPHAGUS [None]
  - BEDRIDDEN [None]
  - BODY TEMPERATURE INCREASED [None]
  - CHILLS [None]
  - COLD SWEAT [None]
  - DRUG INTERACTION [None]
  - ENURESIS [None]
  - EXTRAPYRAMIDAL DISORDER [None]
  - GENERAL PHYSICAL HEALTH DETERIORATION [None]
  - HAEMATEMESIS [None]
  - HIATUS HERNIA [None]
  - MOBILITY DECREASED [None]
  - MUSCLE RIGIDITY [None]
